FAERS Safety Report 6432221-0 (Version None)
Quarter: 2009Q4

REPORT INFORMATION
  Report Type: 
  Country: None (occurrence: None)
  Receive Date: 20091109
  Receipt Date: 20091029
  Transmission Date: 20100525
  Serious: Yes (Other)
  Sender: FDA-Public Use
  Company Number: DE-AMGEN-US340549

PATIENT
  Sex: Female

DRUGS (3)
  1. ENBREL [Suspect]
     Indication: RHEUMATOID ARTHRITIS
     Route: 058
     Dates: start: 20071213
  2. MORPHINE [Concomitant]
     Route: 065
  3. PLAVIX [Concomitant]
     Route: 065

REACTIONS (3)
  - FISTULA [None]
  - IMPAIRED HEALING [None]
  - NEOPLASM [None]
